FAERS Safety Report 13942426 (Version 5)
Quarter: 2018Q1

REPORT INFORMATION
  Report Type: Report from Study
  Country: US (occurrence: US)
  Receive Date: 20170907
  Receipt Date: 20180118
  Transmission Date: 20180508
  Serious: Yes (Hospitalization, Other)
  Sender: FDA-Public Use
  Company Number: US-AMGEN-USASL2017134323

PATIENT
  Age: 72 Year
  Sex: Female

DRUGS (24)
  1. SIMPONI [Concomitant]
     Active Substance: GOLIMUMAB
     Dosage: UNK
  2. VALSARTAN. [Concomitant]
     Active Substance: VALSARTAN
     Dosage: UNK UNK, 3 TIMES/WK
  3. ENBREL [Suspect]
     Active Substance: ETANERCEPT
     Dosage: 50 MG, QWK
     Route: 065
     Dates: start: 201703, end: 2017
  4. RITUXAN [Concomitant]
     Active Substance: RITUXIMAB
     Dosage: UNK
  5. ZANZIA [Concomitant]
     Dosage: UNK
  6. TRAMADOL. [Concomitant]
     Active Substance: TRAMADOL
     Indication: PAIN
     Dosage: UNK
  7. CEVIMELINE. [Concomitant]
     Active Substance: CEVIMELINE
     Dosage: UNK
  8. ORENCIA [Concomitant]
     Active Substance: ABATACEPT
     Dosage: UNK
  9. NITROFURANTOIN. [Concomitant]
     Active Substance: NITROFURANTOIN
     Dosage: UNK
  10. ACTEMRA [Concomitant]
     Active Substance: TOCILIZUMAB
     Dosage: UNK
  11. ARAVA [Concomitant]
     Active Substance: LEFLUNOMIDE
     Dosage: UNK
  12. ENBREL [Suspect]
     Active Substance: ETANERCEPT
     Dosage: 50 MG, QWK
     Route: 065
  13. HUMIRA [Concomitant]
     Active Substance: ADALIMUMAB
     Dosage: UNK
     Route: 065
     Dates: start: 2017
  14. REMICADE [Concomitant]
     Active Substance: INFLIXIMAB
     Dosage: UNK
  15. PREDNISONE. [Concomitant]
     Active Substance: PREDNISONE
     Dosage: 5 MG, UNK
     Dates: start: 2003
  16. TYLENOL [Concomitant]
     Active Substance: ACETAMINOPHEN
     Dosage: UNK
  17. ENBREL [Suspect]
     Active Substance: ETANERCEPT
     Indication: RHEUMATOID ARTHRITIS
     Dosage: 50 MG, QWK
     Route: 065
  18. ENBREL [Suspect]
     Active Substance: ETANERCEPT
     Dosage: UNK, EVERY 10 TO 12 DAYS
     Route: 065
     Dates: start: 2017, end: 2017
  19. KINERET [Concomitant]
     Active Substance: ANAKINRA
     Indication: PRODUCT USED FOR UNKNOWN INDICATION
     Dosage: UNK
     Route: 065
  20. XELJANZ [Concomitant]
     Active Substance: TOFACITINIB CITRATE
     Dosage: UNK
  21. FUROSEMIDE. [Concomitant]
     Active Substance: FUROSEMIDE
     Dosage: UNK, ON OTHER DAYS
  22. ENBREL [Suspect]
     Active Substance: ETANERCEPT
     Dosage: 50 MG, QWK
     Route: 065
     Dates: start: 20170730, end: 2017
  23. ACETAMINOPHEN. [Concomitant]
     Active Substance: ACETAMINOPHEN
     Indication: PAIN
  24. OMEPRAZOLE. [Concomitant]
     Active Substance: OMEPRAZOLE
     Dosage: UNK

REACTIONS (21)
  - Pericarditis [Unknown]
  - Skin irritation [Unknown]
  - Hypertension [Recovered/Resolved]
  - Cataract [Unknown]
  - Rash pruritic [Unknown]
  - Arthralgia [Unknown]
  - Lung disorder [Unknown]
  - Rash papular [Unknown]
  - Injection site pruritus [Unknown]
  - Cardiac flutter [Unknown]
  - Loss of personal independence in daily activities [Unknown]
  - Injection site warmth [Unknown]
  - Injection site erythema [Unknown]
  - Bronchiectasis [Unknown]
  - Drug effect decreased [Unknown]
  - Diarrhoea [Recovered/Resolved]
  - Feeling hot [Unknown]
  - Injection site swelling [Unknown]
  - Palpitations [Recovered/Resolved]
  - Feeling abnormal [Recovered/Resolved]
  - Intentional product misuse [Unknown]

NARRATIVE: CASE EVENT DATE: 2012
